FAERS Safety Report 15287322 (Version 9)
Quarter: 2019Q2

REPORT INFORMATION
  Report Type: Spontaneous
  Country: FR (occurrence: FR)
  Receive Date: 20180817
  Receipt Date: 20190605
  Transmission Date: 20190711
  Serious: Yes (Congenital Anomaly, Other)
  Sender: FDA-Public Use
  Company Number: FR-AUROBINDO-AUR-APL-2018-041700

PATIENT

DRUGS (5)
  1. ISENTRESS [Suspect]
     Active Substance: RALTEGRAVIR POTASSIUM
     Indication: HIV INFECTION
     Dosage: UNK
     Route: 065
  2. TENOFOVIR DISOPROXIL FILM COATED TABLETS [Suspect]
     Active Substance: TENOFOVIR DISOPROXIL
     Indication: HIV INFECTION
     Dosage: UNK
     Route: 065
  3. TENOFOVIR DISOPROXIL FILM COATED TABLETS [Suspect]
     Active Substance: TENOFOVIR DISOPROXIL
     Dosage: 245 MILLIGRAM, ONCE A DAY
     Route: 064
     Dates: start: 20151110, end: 20160721
  4. NEVIRAPINE. [Suspect]
     Active Substance: NEVIRAPINE
     Indication: HIV INFECTION
     Dosage: 1.5 MILLILITER, ONCE A DAY
     Route: 064
     Dates: start: 20151110, end: 20160721
  5. ISENTRESS [Suspect]
     Active Substance: RALTEGRAVIR POTASSIUM
     Dosage: 400 MILLIGRAM, ONCE A DAY
     Route: 064
     Dates: start: 20151110, end: 20161208

REACTIONS (4)
  - Foetal exposure during pregnancy [Recovered/Resolved]
  - Congenital umbilical hernia [Unknown]
  - Brachydactyly [Unknown]
  - Laryngomalacia [Unknown]

NARRATIVE: CASE EVENT DATE: 20160721
